FAERS Safety Report 8240275-4 (Version None)
Quarter: 2012Q1

REPORT INFORMATION
  Report Type: 
  Country: None (occurrence: None)
  Receive Date: 20120328
  Receipt Date: 20120328
  Transmission Date: 20120608
  Serious: No
  Sender: FDA-Public Use
  Company Number: None

PATIENT
  Age: 59 Year
  Sex: Female
  Weight: 136.07 kg

DRUGS (1)
  1. SINGULAIR [Suspect]
     Indication: MULTIPLE ALLERGIES
     Route: 048
     Dates: start: 20110601, end: 20120201

REACTIONS (5)
  - INSOMNIA [None]
  - AGITATION [None]
  - ANXIETY [None]
  - MUSCULAR WEAKNESS [None]
  - ABNORMAL DREAMS [None]
